FAERS Safety Report 13944160 (Version 1)
Quarter: 2017Q3

REPORT INFORMATION
  Report Type: Spontaneous
  Country: US (occurrence: US)
  Receive Date: 20170907
  Receipt Date: 20170907
  Transmission Date: 20171128
  Serious: No
  Sender: FDA-Public Use
  Company Number: US-ROCHE-1367017

PATIENT
  Sex: Female

DRUGS (3)
  1. RITUXAN [Suspect]
     Active Substance: RITUXIMAB
     Indication: RHEUMATOID ARTHRITIS
     Route: 042
  2. LEUCOVORIN CA [Concomitant]
     Indication: RHEUMATOID ARTHRITIS
     Dosage: 2-5 MG
     Route: 048
     Dates: start: 20120701
  3. METHOTREXATE. [Concomitant]
     Active Substance: METHOTREXATE
     Indication: RHEUMATOID ARTHRITIS
     Dosage: 1-2.5 MG
     Route: 048
     Dates: start: 20120319

REACTIONS (1)
  - Pruritus [Unknown]
